FAERS Safety Report 8197188-6 (Version None)
Quarter: 2012Q1

REPORT INFORMATION
  Report Type: 
  Country: None (occurrence: None)
  Receive Date: 20120309
  Receipt Date: 20120307
  Transmission Date: 20120608
  Serious: Yes (Other)
  Sender: FDA-Public Use
  Company Number: US-PFIZER INC-2012061592

PATIENT
  Sex: Female
  Weight: 47.166 kg

DRUGS (9)
  1. COMBIVIR [Concomitant]
     Indication: HIV INFECTION
     Dosage: 150/300 MG, 2X/DAY
  2. SUSTIVA [Concomitant]
     Indication: HIV INFECTION
     Dosage: 600 MG, DAILY
  3. VALTREX [Concomitant]
     Indication: CEREBROVASCULAR ACCIDENT
     Dosage: UNK, AS NEEDED
  4. ATIVAN [Concomitant]
     Indication: NAUSEA
     Dosage: 1 MG, 3X/DAY
  5. AMBIEN [Concomitant]
     Indication: SLEEP DISORDER
     Dosage: 10 MG, DAILY
  6. SERTRALINE HYDROCHLORIDE [Suspect]
     Indication: NERVOUS SYSTEM DISORDER
     Dosage: 100 MG, DAILY
     Dates: start: 20040101
  7. SODIUM BICARBONATE [Concomitant]
     Indication: ACIDOSIS
     Dosage: 650 MG, 4X/DAY
  8. ATIVAN [Concomitant]
     Indication: ANXIETY
  9. NORVASC [Suspect]
     Indication: HYPERTENSION
     Dosage: 5 MG, DAILY
     Route: 048

REACTIONS (3)
  - RENAL FAILURE [None]
  - ANAL CANCER [None]
  - MEMORY IMPAIRMENT [None]
